FAERS Safety Report 6217795-7 (Version None)
Quarter: 2009Q2

REPORT INFORMATION
  Report Type: 
  Country: None (occurrence: None)
  Receive Date: 20090604
  Receipt Date: 20090604
  Transmission Date: 20091009
  Serious: Yes (Death)
  Sender: FDA-Public Use
  Company Number: None

PATIENT
  Sex: Male
  Weight: 95.2554 kg

DRUGS (2)
  1. ZYPREXA [Suspect]
     Indication: POST-TRAUMATIC STRESS DISORDER
     Dosage: 40 MG PER DAY PO
     Route: 048
     Dates: start: 20070425, end: 20071028
  2. ZYPREXA [Suspect]
     Indication: PSYCHOTIC DISORDER
     Dosage: 40 MG PER DAY PO
     Route: 048
     Dates: start: 20070425, end: 20071028

REACTIONS (6)
  - ARTERIOSCLEROSIS CORONARY ARTERY [None]
  - DIABETIC KETOACIDOSIS [None]
  - SCHIZOPHRENIA [None]
  - TREATMENT NONCOMPLIANCE [None]
  - UNRESPONSIVE TO STIMULI [None]
  - VOMITING [None]
